FAERS Safety Report 4576210-X (Version None)
Quarter: 2005Q1

REPORT INFORMATION
  Report Type: 
  Country: None (occurrence: None)
  Receive Date: 20050209
  Receipt Date: 20050131
  Transmission Date: 20050727
  Serious: Yes (Death, Other)
  Sender: FDA-Public Use
  Company Number: HQWYE033302FEB05

PATIENT
  Sex: Female

DRUGS (1)
  1. ENBREL [Suspect]
     Indication: RHEUMATOID ARTHRITIS
     Dosage: UNKNOWN
     Dates: start: 20020226

REACTIONS (4)
  - DIABETES MELLITUS [None]
  - SEPSIS [None]
  - SEPTIC SHOCK [None]
  - SKIN ULCER [None]
